FAERS Safety Report 8263290-3 (Version None)
Quarter: 2012Q1

REPORT INFORMATION
  Report Type: 
  Country: None (occurrence: None)
  Receive Date: 20120327
  Receipt Date: 20090205
  Transmission Date: 20120608
  Serious: Yes (Other)
  Sender: FDA-Public Use
  Company Number: PHEH2009US01446

PATIENT
  Sex: Male

DRUGS (1)
  1. GLEEVEC [Suspect]
     Dosage: 400 MG, UNK
     Dates: start: 20070901

REACTIONS (7)
  - FLUID RETENTION [None]
  - DECREASED APPETITE [None]
  - DIARRHOEA [None]
  - BLOOD URINE PRESENT [None]
  - VOMITING [None]
  - MUSCLE SPASMS [None]
  - RASH [None]
